FAERS Safety Report 26040652 (Version 1)
Quarter: 2025Q4

REPORT INFORMATION
  Report Type: Spontaneous
  Country: US (occurrence: None)
  Receive Date: 20251112
  Receipt Date: 20251112
  Transmission Date: 20260118
  Serious: Yes (Other)
  Sender: FDA-CTU
  Company Number: None

PATIENT
  Age: 78 Year
  Sex: Female

DRUGS (1)
  1. LENALIDOMIDE [Suspect]
     Active Substance: LENALIDOMIDE
     Indication: 5q minus syndrome
     Dosage: OTHER FREQUENCY : TAKE 1 CAPSULE M,W,F FOR 21 DAYS ON THEN 7 DAYS OFF ;?

REACTIONS (4)
  - Cardiac failure congestive [None]
  - Full blood count decreased [None]
  - Drug ineffective [None]
  - Therapy interrupted [None]
